FAERS Safety Report 9868625 (Version 1)
Quarter: 2014Q1

REPORT INFORMATION
  Report Type: Spontaneous
  Country: JP (occurrence: JP)
  Receive Date: 20140204
  Receipt Date: 20140204
  Transmission Date: 20141002
  Serious: Yes (Other)
  Sender: FDA-Public Use
  Company Number: JP-MYLANLABS-2014S1001925

PATIENT
  Age: 28 Year
  Sex: Male

DRUGS (3)
  1. BLEOMYCIN [Suspect]
     Indication: TESTICULAR CANCER METASTATIC
     Route: 065
     Dates: start: 200906
  2. ETOPOSIDE [Suspect]
     Indication: TESTICULAR CANCER METASTATIC
     Route: 065
     Dates: start: 200906
  3. CISPLATIN [Suspect]
     Indication: TESTICULAR CANCER METASTATIC
     Route: 065
     Dates: start: 200906

REACTIONS (5)
  - Pneumomediastinum [Recovered/Resolved]
  - Bone marrow failure [Recovering/Resolving]
  - Febrile neutropenia [Unknown]
  - Nausea [Unknown]
  - Vomiting [Unknown]
